FAERS Safety Report 15119649 (Version 1)
Quarter: 2018Q3

REPORT INFORMATION
  Report Type: Spontaneous
  Country: US (occurrence: US)
  Receive Date: 20180613
  Receipt Date: 20180613
  Transmission Date: 20181010
  Serious: Yes (Other)
  Sender: FDA-Public Use
  Company Number: None

PATIENT
  Age: 64 Year
  Sex: Male
  Weight: 86.18 kg

DRUGS (3)
  1. DTPA CHELATION [Concomitant]
  2. DMSA [Concomitant]
     Active Substance: SUCCIMER
  3. OPTIMARK [Suspect]
     Active Substance: GADOVERSETAMIDE

REACTIONS (3)
  - Contrast media toxicity [None]
  - Weight decreased [None]
  - Muscular dystrophy [None]

NARRATIVE: CASE EVENT DATE: 20170823
